FAERS Safety Report 6181787-7 (Version None)
Quarter: 2009Q2

REPORT INFORMATION
  Report Type: 
  Country: None (occurrence: None)
  Receive Date: 20090506
  Receipt Date: 20090423
  Transmission Date: 20091009
  Serious: Yes (Life-Threatening)
  Sender: FDA-Public Use
  Company Number: JP-PFIZER INC-2009191556

PATIENT
  Sex: Female
  Weight: 47.2 kg

DRUGS (7)
  1. UNASYN [Suspect]
     Indication: SHOCK
     Dosage: UNK
     Route: 042
     Dates: start: 20090313, end: 20090313
  2. SOLU-MEDROL [Suspect]
     Indication: PROPHYLAXIS
     Dosage: UNK
     Route: 042
     Dates: start: 20090313, end: 20090313
  3. DORMICUM [Concomitant]
     Dosage: UNK
     Route: 042
     Dates: start: 20090313, end: 20090313
  4. SEVOFRANE [Concomitant]
     Dosage: UNK
     Route: 025
     Dates: start: 20090313, end: 20090313
  5. ULTIVA [Concomitant]
     Dosage: UNK
     Route: 042
     Dates: start: 20090313, end: 20090313
  6. PROPOFOL [Concomitant]
     Dosage: UNK
     Route: 042
     Dates: start: 20090313, end: 20090313
  7. HESPANDER [Concomitant]
     Dosage: UNK
     Route: 042
     Dates: start: 20090313, end: 20090313

REACTIONS (1)
  - ANAPHYLACTIC SHOCK [None]
